FAERS Safety Report 8772458 (Version 3)
Quarter: 2012Q4

REPORT INFORMATION
  Report Type: 
  Country: US (occurrence: US)
  Receive Date: 20120905
  Receipt Date: 20121112
  Transmission Date: 20130627
  Serious: Yes (Hospitalization, Disabling, Other)
  Sender: FDA-Public Use
  Company Number: US-009507513-1012USA01898

PATIENT

DRUGS (10)
  1. FOSAMAX [Suspect]
     Indication: OSTEOPOROSIS
     Dosage: 70 mg, QW
     Route: 048
     Dates: start: 199701
  2. FOSAMAX [Suspect]
     Dosage: 70 mg, QW
     Route: 048
     Dates: start: 20040301, end: 200811
  3. FOSAMAX [Suspect]
     Indication: OSTEOPOROSIS
     Dosage: 70 mg, QW
     Route: 048
     Dates: start: 200803, end: 201006
  4. FOSAMAX [Suspect]
     Indication: OSTEOPENIA
  5. CLARITIN-D [Concomitant]
     Indication: RHINITIS ALLERGIC
  6. EVISTA [Concomitant]
     Indication: OSTEOPOROSIS
     Dosage: 60 mg, qd
  7. NASACORT [Concomitant]
     Indication: RHINITIS ALLERGIC
  8. NASACORT [Concomitant]
     Indication: ASTHMA
  9. AZMACORT [Concomitant]
     Indication: ASTHMA
  10. ZYRTEC [Concomitant]
     Indication: RHINITIS ALLERGIC

REACTIONS (76)
  - Loss of consciousness [Unknown]
  - External fixation of fracture [Unknown]
  - Comminuted fracture [Unknown]
  - Bladder disorder [Unknown]
  - Retinal detachment [Unknown]
  - Rotator cuff syndrome [Recovering/Resolving]
  - Amnesia [Unknown]
  - Fall [Unknown]
  - Adverse event [Unknown]
  - Cataract operation [Unknown]
  - Head injury [Unknown]
  - Fall [Unknown]
  - Femur fracture [Unknown]
  - Hypertension [Not Recovered/Not Resolved]
  - Hypercholesterolaemia [Not Recovered/Not Resolved]
  - Depression [Unknown]
  - Spinal osteoarthritis [Unknown]
  - Intervertebral disc protrusion [Unknown]
  - Vertebral foraminal stenosis [Unknown]
  - Intervertebral disc protrusion [Unknown]
  - Bursitis [Not Recovered/Not Resolved]
  - Balance disorder [Unknown]
  - Sciatica [Not Recovered/Not Resolved]
  - Muscle strain [Not Recovered/Not Resolved]
  - Epicondylitis [Unknown]
  - Intervertebral disc degeneration [Unknown]
  - Food allergy [Unknown]
  - Fall [Unknown]
  - Ligament sprain [Unknown]
  - Urinary tract infection [Unknown]
  - Tachycardia [Unknown]
  - Confusional state [Unknown]
  - Adverse drug reaction [Unknown]
  - Fall [Unknown]
  - Neuropathy peripheral [Unknown]
  - Arthropathy [Unknown]
  - Intervertebral disc disorder [Not Recovered/Not Resolved]
  - Coagulopathy [Unknown]
  - Insomnia [Unknown]
  - Large intestine polyp [Unknown]
  - Colon adenoma [Unknown]
  - Hepatic steatosis [Unknown]
  - Cerebral ischaemia [Unknown]
  - Fall [Unknown]
  - Renal cyst haemorrhage [Unknown]
  - Cataract [Unknown]
  - Renal cyst [Unknown]
  - Chest pain [Unknown]
  - Eye swelling [Unknown]
  - Conjunctivitis allergic [Unknown]
  - Fibromyalgia [Unknown]
  - Ear disorder [Unknown]
  - Lumbar spinal stenosis [Unknown]
  - Sinusitis [Unknown]
  - Cellulitis [Unknown]
  - Aneurysm [Unknown]
  - Ataxia [Unknown]
  - Head injury [Unknown]
  - Lumbar radiculopathy [Unknown]
  - Headache [Unknown]
  - Abdominal discomfort [Unknown]
  - Drug hypersensitivity [Unknown]
  - Drug hypersensitivity [Unknown]
  - Erythema [Unknown]
  - Dizziness [Unknown]
  - Dizziness [Unknown]
  - Headache [Unknown]
  - Gastrooesophageal reflux disease [Unknown]
  - Gastrooesophageal reflux disease [Unknown]
  - Gastritis [Unknown]
  - Rash [Unknown]
  - Pain in extremity [Unknown]
  - Dyspepsia [Unknown]
  - Asthenia [Unknown]
  - Muscle spasms [Unknown]
  - Drug ineffective [Unknown]
